FAERS Safety Report 7591934-8 (Version None)
Quarter: 2011Q3

REPORT INFORMATION
  Report Type: 
  Country: None (occurrence: None)
  Receive Date: 20110706
  Receipt Date: 20110701
  Transmission Date: 20111222
  Serious: No
  Sender: FDA-Public Use
  Company Number: US-BAYER-2011-057811

PATIENT
  Sex: Female

DRUGS (7)
  1. PLAN B [Concomitant]
     Dosage: 1.5 MG, UNK
     Route: 048
  2. YAZ [Suspect]
     Indication: CONTRACEPTION
     Dosage: UNK, QD
     Route: 048
  3. PLAN B [Concomitant]
     Indication: POST COITAL CONTRACEPTION
     Dosage: 1.5 MG, UNK
     Route: 048
  4. PLAN B [Concomitant]
     Dosage: 1.5 MG, UNK
     Route: 048
  5. PLAN B [Concomitant]
     Dosage: 1.5 MG, UNK
     Route: 048
  6. PLAN B [Concomitant]
     Dosage: 1.5 MG, UNK
     Route: 048
  7. PLAN B [Concomitant]
     Dosage: 1.5 MG, UNK
     Route: 048

REACTIONS (1)
  - AMENORRHOEA [None]
